FAERS Safety Report 16849329 (Version 1)
Quarter: 2019Q3

REPORT INFORMATION
  Report Type: Spontaneous
  Country: IL (occurrence: IL)
  Receive Date: 20190925
  Receipt Date: 20190925
  Transmission Date: 20191005
  Serious: Yes (Life-Threatening, Hospitalization)
  Sender: FDA-Public Use
  Company Number: IL-SCIEGEN PHARMACEUTICALS INC-2019SCILIT00267

PATIENT

DRUGS (7)
  1. FLECAINIDE [Suspect]
     Active Substance: FLECAINIDE
  2. GLUCAGON. [Interacting]
     Active Substance: GLUCAGON
  3. VENLAFAXINE [Suspect]
     Active Substance: VENLAFAXINE HYDROCHLORIDE
  4. ESCITALOPRAM [Suspect]
     Active Substance: ESCITALOPRAM OXALATE
  5. CLONAZEPAM. [Suspect]
     Active Substance: CLONAZEPAM
  6. BISOPROLOL [Suspect]
     Active Substance: BISOPROLOL
  7. QUETIAPINE. [Suspect]
     Active Substance: QUETIAPINE

REACTIONS (7)
  - Cardiac arrest [Recovering/Resolving]
  - Infection [Recovered/Resolved]
  - Suicide attempt [Recovering/Resolving]
  - Toxicity to various agents [Recovering/Resolving]
  - Unresponsive to stimuli [Recovering/Resolving]
  - Intentional overdose [Recovered/Resolved]
  - Thrombocytopenia [Recovered/Resolved]
